FAERS Safety Report 23537941 (Version 2)
Quarter: 2024Q1

REPORT INFORMATION
  Report Type: Spontaneous
  Country: DZ (occurrence: DZ)
  Receive Date: 20240219
  Receipt Date: 20240319
  Transmission Date: 20240410
  Serious: Yes (Death, Other)
  Sender: FDA-Public Use
  Company Number: DZ-BIOVITRUM-2024-DZ-002665

PATIENT
  Age: 2 Month
  Sex: Male

DRUGS (1)
  1. NITISINONE [Suspect]
     Active Substance: NITISINONE
     Indication: Tyrosinaemia

REACTIONS (2)
  - Hepatic failure [Fatal]
  - Cholestasis [Unknown]
